FAERS Safety Report 11317927 (Version 3)
Quarter: 2015Q3

REPORT INFORMATION
  Report Type: Report from Study
  Country: CO (occurrence: CO)
  Receive Date: 20150728
  Receipt Date: 20150925
  Transmission Date: 20151125
  Serious: Yes (Other)
  Sender: FDA-Public Use
  Company Number: CO-BAYER-2015-377819

PATIENT
  Age: 26 Year
  Sex: Female

DRUGS (3)
  1. BETAFERON [Suspect]
     Active Substance: INTERFERON BETA-1B
     Indication: MULTIPLE SCLEROSIS
     Dosage: 0.25 ?G, QOD
     Route: 058
     Dates: start: 20140304
  2. BETAFERON [Suspect]
     Active Substance: INTERFERON BETA-1B
     Indication: MULTIPLE SCLEROSIS
     Dosage: UNK, TITULATION PERIOD
     Dates: start: 201507
  3. BETAFERON [Suspect]
     Active Substance: INTERFERON BETA-1B
     Indication: MULTIPLE SCLEROSIS
     Dosage: 1 DF, UNK
     Route: 058

REACTIONS (6)
  - Hepatic enzyme increased [Recovered/Resolved]
  - Hepatic enzyme increased [Recovered/Resolved]
  - Activities of daily living impaired [Not Recovered/Not Resolved]
  - Female sterilisation [None]
  - Pain [Not Recovered/Not Resolved]
  - Ocular icterus [Recovered/Resolved]

NARRATIVE: CASE EVENT DATE: 201412
